FAERS Safety Report 15036528 (Version 2)
Quarter: 2018Q3

REPORT INFORMATION
  Report Type: Spontaneous
  Country: US (occurrence: US)
  Receive Date: 20180620
  Receipt Date: 20180720
  Transmission Date: 20181010
  Serious: Yes (Other)
  Sender: FDA-Public Use
  Company Number: US-PFIZER INC-2018244915

PATIENT
  Age: 67 Year
  Sex: Female
  Weight: 93.44 kg

DRUGS (8)
  1. LYRICA [Suspect]
     Active Substance: PREGABALIN
     Indication: FIBROMYALGIA
     Dosage: 50 MG, 1X/DAY (AT NIGHT)
     Route: 048
     Dates: start: 2017, end: 20180601
  2. LYRICA [Suspect]
     Active Substance: PREGABALIN
     Indication: PAIN
     Dosage: UNK
     Route: 048
     Dates: start: 20180613, end: 2018
  3. SERTRALINE [Concomitant]
     Active Substance: SERTRALINE HYDROCHLORIDE
     Indication: FIBROMYALGIA
     Dosage: 100 MG, 1X/DAY (QHS)
     Route: 048
     Dates: start: 1995
  4. IMURAN [Concomitant]
     Active Substance: AZATHIOPRINE
     Indication: PNEUMONITIS
  5. THEO 24 [Concomitant]
     Indication: ASTHMA
     Dosage: 300 MG, UNK
     Dates: start: 1983
  6. IMURAN [Concomitant]
     Active Substance: AZATHIOPRINE
     Indication: HYPERSENSITIVITY
     Dosage: UNK
  7. PREDNISONE. [Concomitant]
     Active Substance: PREDNISONE
     Indication: HYPERSENSITIVITY
     Dosage: 5 MG, UNK
     Dates: start: 201606
  8. PREDNISONE. [Concomitant]
     Active Substance: PREDNISONE
     Indication: PNEUMONITIS

REACTIONS (3)
  - Tendonitis [Recovered/Resolved]
  - Joint injury [Unknown]
  - Muscle spasms [Unknown]

NARRATIVE: CASE EVENT DATE: 2018
